FAERS Safety Report 7241337-0 (Version None)
Quarter: 2011Q1

REPORT INFORMATION
  Report Type: 
  Country: None (occurrence: None)
  Receive Date: 20110124
  Receipt Date: 20110118
  Transmission Date: 20110831
  Serious: Yes (Other)
  Sender: FDA-Public Use
  Company Number: CN-ROCHE-753828

PATIENT
  Age: 48 Year
  Sex: Female
  Weight: 60 kg

DRUGS (1)
  1. PEGASYS [Suspect]
     Indication: HEPATITIS B
     Route: 058
     Dates: start: 20100707

REACTIONS (4)
  - HEPATIC CIRRHOSIS [None]
  - HEART RATE INCREASED [None]
  - TRI-IODOTHYRONINE INCREASED [None]
  - THYROXINE INCREASED [None]
